FAERS Safety Report 8413555-7 (Version None)
Quarter: 2012Q2

REPORT INFORMATION
  Report Type: 
  Country: None (occurrence: None)
  Receive Date: 20120605
  Receipt Date: 20120524
  Transmission Date: 20120825
  Serious: Yes (Death, Hospitalization)
  Sender: FDA-Public Use
  Company Number: FR-GLAXOSMITHKLINE-B0803644A

PATIENT
  Sex: Male

DRUGS (8)
  1. INDAPAMIDE [Concomitant]
     Dosage: 1UNIT IN THE MORNING
     Route: 048
  2. PROTON PUMP INHIBITOR [Concomitant]
     Dosage: 20MG PER DAY
  3. FERROSTRANE [Concomitant]
     Dosage: 1TSP THREE TIMES PER DAY
     Route: 048
  4. ARIXTRA [Suspect]
     Indication: PRODUCT USED FOR UNKNOWN INDICATION
     Dosage: 7.5MG PER DAY
     Route: 058
     Dates: start: 20120317
  5. CHOLECALCIFEROL [Concomitant]
     Dosage: 1AMP MONTHLY
     Route: 048
  6. ASPIRIN [Suspect]
     Indication: PRODUCT USED FOR UNKNOWN INDICATION
     Dosage: 160MG PER DAY
     Route: 048
     Dates: start: 20120317
  7. PERINDOPRIL ERBUMINE [Suspect]
     Indication: PRODUCT USED FOR UNKNOWN INDICATION
     Dosage: 2MG PER DAY
     Route: 048
     Dates: start: 20120317
  8. GABAPENTIN [Concomitant]
     Dosage: 100MG AT NIGHT
     Route: 048

REACTIONS (11)
  - APRAXIA [None]
  - AUTONOMIC NERVOUS SYSTEM IMBALANCE [None]
  - NERVOUS SYSTEM DISORDER [None]
  - LOSS OF CONSCIOUSNESS [None]
  - DYSARTHRIA [None]
  - HEMIPARESIS [None]
  - CEREBRAL HAEMATOMA [None]
  - HEADACHE [None]
  - CEREBROVASCULAR ACCIDENT [None]
  - APHASIA [None]
  - HEMIPLEGIA [None]
